FAERS Safety Report 5721168-0 (Version None)
Quarter: 2008Q2

REPORT INFORMATION
  Report Type: 
  Country: None (occurrence: None)
  Receive Date: 20080429
  Receipt Date: 20080424
  Transmission Date: 20081010
  Serious: Yes (Life-Threatening, Hospitalization)
  Sender: FDA-Public Use
  Company Number: B0514116A

PATIENT
  Age: 51 Year
  Sex: Male
  Weight: 80 kg

DRUGS (3)
  1. AUGMENTIN '125' [Suspect]
     Indication: GINGIVAL RECESSION
     Route: 048
     Dates: start: 20080320
  2. RAMIPRIL [Suspect]
     Dosage: 10MG PER DAY
  3. PARKEMED [Concomitant]
     Indication: TOOTHACHE
     Route: 048

REACTIONS (6)
  - ANAPHYLACTIC REACTION [None]
  - BRONCHOSPASM [None]
  - DIZZINESS [None]
  - HYPOTENSION [None]
  - RESPIRATORY FAILURE [None]
  - SYNCOPE [None]
